FAERS Safety Report 12626394 (Version 1)
Quarter: 2016Q3

REPORT INFORMATION
  Report Type: Spontaneous
  Country: GB (occurrence: GB)
  Receive Date: 20160805
  Receipt Date: 20160805
  Transmission Date: 20161109
  Serious: Yes (Other)
  Sender: FDA-Public Use
  Company Number: GB-FRESENIUS KABI-FK201605142

PATIENT
  Age: 5 Decade
  Sex: Male

DRUGS (8)
  1. 5 FLUOROURACIL [Concomitant]
     Active Substance: FLUOROURACIL
  2. IBUPROFEN. [Concomitant]
     Active Substance: IBUPROFEN
  3. IRINOTECAN (MANUFACTURER UNKNOWN) [Suspect]
     Active Substance: IRINOTECAN
     Indication: COLORECTAL CANCER
  4. OXALIPLATIN. [Concomitant]
     Active Substance: OXALIPLATIN
  5. GRANISETRON [Concomitant]
     Active Substance: GRANISETRON
  6. IRINOTECAN (MANUFACTURER UNKNOWN) [Suspect]
     Active Substance: IRINOTECAN
     Indication: ENDOMETRIAL ADENOCARCINOMA
     Route: 042
     Dates: start: 20160718, end: 20160718
  7. ASTRA PHARMS OMEPRAZOLE [Concomitant]
  8. DEXAMETASONE [Concomitant]
     Active Substance: DEXAMETHASONE

REACTIONS (4)
  - Throat tightness [Recovered/Resolved]
  - Dyspnoea [Recovered/Resolved]
  - Dysphonia [Recovered/Resolved]
  - Aphonia [Recovered/Resolved]

NARRATIVE: CASE EVENT DATE: 20160718
